FAERS Safety Report 6679676-4 (Version None)
Quarter: 2010Q2

REPORT INFORMATION
  Report Type: 
  Country: None (occurrence: None)
  Receive Date: 20100413
  Receipt Date: 20100407
  Transmission Date: 20101027
  Serious: Yes (Hospitalization)
  Sender: FDA-Public Use
  Company Number: B0646819A

PATIENT
  Sex: Female

DRUGS (3)
  1. AUGMENTIN '125' [Suspect]
     Dosage: 1G TWICE PER DAY
     Route: 048
     Dates: start: 20100317, end: 20100325
  2. TRI-REGOL [Concomitant]
  3. CONDROSULF [Concomitant]
     Dates: start: 20100310

REACTIONS (2)
  - PRURITUS GENERALISED [None]
  - RASH MACULO-PAPULAR [None]
